FAERS Safety Report 16249266 (Version 1)
Quarter: 2019Q2

REPORT INFORMATION
  Report Type: Spontaneous
  Country: GB (occurrence: GB)
  Receive Date: 20190429
  Receipt Date: 20190429
  Transmission Date: 20190711
  Serious: Yes (Life-Threatening, Hospitalization, Other)
  Sender: FDA-Public Use
  Company Number: GB-TEVA-2019-GB-1041952

PATIENT
  Age: 38 Year
  Sex: Male
  Weight: 58 kg

DRUGS (2)
  1. SERTRALINE [Suspect]
     Active Substance: SERTRALINE HYDROCHLORIDE
     Indication: ANXIETY
     Dosage: 100 MILLIGRAM DAILY;
     Route: 048
     Dates: start: 20171201
  2. ZOPICLONE [Concomitant]
     Active Substance: ZOPICLONE
     Dosage: OCCASIONAL ZOPICLONE AS NEEDED, BUT NOT ON THE DAY WHEN THE EPISODE HAPPENED.
     Route: 065

REACTIONS (6)
  - Hyponatraemia [Recovered/Resolved with Sequelae]
  - Delirium [Unknown]
  - Fatigue [Unknown]
  - Movement disorder [Unknown]
  - Circulatory collapse [Unknown]
  - Confusional state [Unknown]

NARRATIVE: CASE EVENT DATE: 20180416
